FAERS Safety Report 21093439 (Version 1)
Quarter: 2022Q3

REPORT INFORMATION
  Report Type: Spontaneous
  Country: CN (occurrence: CN)
  Receive Date: 20220718
  Receipt Date: 20220718
  Transmission Date: 20221027
  Serious: Yes (Hospitalization, Other)
  Sender: FDA-Public Use
  Company Number: CN-AMGEN-CHNSP2022121292

PATIENT
  Age: 67 Year
  Sex: Female

DRUGS (7)
  1. EPOETIN ALFA [Suspect]
     Active Substance: ERYTHROPOIETIN
     Indication: Product used for unknown indication
     Dosage: 4000 UNIT, Q3WK
     Route: 065
  2. CINACALCET HYDROCHLORIDE [Suspect]
     Active Substance: CINACALCET HYDROCHLORIDE
     Indication: Product used for unknown indication
     Dosage: 25 MILLIGRAM, QD
     Route: 065
  3. AMINO ACIDS, SOURCE UNSPECIFIED [Concomitant]
     Active Substance: AMINO ACIDS, SOURCE UNSPECIFIED
     Dosage: 2520 MILLIGRAM, 3 TIMES DAILY
  4. SACUBITRIL [Concomitant]
     Active Substance: SACUBITRIL
     Dosage: 12 TO 13 MG, BID
  5. SACUBITRIL [Concomitant]
     Active Substance: SACUBITRIL
     Dosage: 24/26 MG TWICE DAILY 3 DAYS LATER
  6. VALSARTAN [Concomitant]
     Active Substance: VALSARTAN
     Dosage: 12/13MG TWICE.
  7. VALSARTAN [Concomitant]
     Active Substance: VALSARTAN
     Dosage: 24/26 MG TWICE DAILY 3 DAYS LATER

REACTIONS (4)
  - Cardiac failure chronic [Recovering/Resolving]
  - Hypovolaemia [Recovering/Resolving]
  - Dialysis hypotension [Recovering/Resolving]
  - Off label use [Unknown]
